FAERS Safety Report 9022626 (Version 2)
Quarter: 2013Q2

REPORT INFORMATION
  Report Type: Spontaneous
  Country: US (occurrence: US)
  Receive Date: 20130120
  Receipt Date: 20130501
  Transmission Date: 20140414
  Serious: Yes (Hospitalization)
  Sender: FDA-Public Use
  Company Number: PHHY2013US003981

PATIENT
  Age: 40 Year
  Sex: Female

DRUGS (1)
  1. DEXAMETHASONE SANDOZ [Suspect]
     Indication: SECONDARY ADRENOCORTICAL INSUFFICIENCY

REACTIONS (5)
  - Diabetes insipidus [Recovered/Resolved]
  - Blood osmolarity increased [Recovered/Resolved]
  - Polyuria [Recovered/Resolved]
  - Hypernatraemia [Recovered/Resolved]
  - Urine osmolarity decreased [Recovered/Resolved]
